FAERS Safety Report 23808171 (Version 2)
Quarter: 2024Q2

REPORT INFORMATION
  Report Type: Spontaneous
  Country: UA (occurrence: UA)
  Receive Date: 20240502
  Receipt Date: 20240605
  Transmission Date: 20240715
  Serious: Yes (Other)
  Sender: FDA-Public Use
  Company Number: UA-AUROBINDO-AUR-APL-2024-020272

PATIENT
  Age: 25 Year
  Sex: Male

DRUGS (7)
  1. RAMIPRIL [Suspect]
     Active Substance: RAMIPRIL
     Indication: Cardiac failure congestive
     Dosage: UNK
     Route: 065
  2. RAMIPRIL [Suspect]
     Active Substance: RAMIPRIL
     Indication: Dilated cardiomyopathy
  3. TORSEMIDE [Suspect]
     Active Substance: TORSEMIDE
     Indication: Cardiac failure congestive
     Dosage: UNK
     Route: 065
  4. TORSEMIDE [Suspect]
     Active Substance: TORSEMIDE
     Indication: Dilated cardiomyopathy
  5. RIVAROXABAN [Suspect]
     Active Substance: RIVAROXABAN
     Indication: Cardiac failure congestive
     Dosage: UNK
     Route: 065
  6. RIVAROXABAN [Suspect]
     Active Substance: RIVAROXABAN
     Indication: Dilated cardiomyopathy
  7. PHOSPHOCREATINE [Concomitant]
     Active Substance: PHOSPHOCREATINE
     Indication: Product used for unknown indication
     Dosage: UNK
     Route: 065

REACTIONS (1)
  - Drug ineffective [Unknown]
